FAERS Safety Report 9233957 (Version 2)
Quarter: 2013Q2

REPORT INFORMATION
  Report Type: Spontaneous
  Country: US (occurrence: US)
  Receive Date: 20130416
  Receipt Date: 20130507
  Transmission Date: 20140414
  Serious: Yes (Hospitalization, Other)
  Sender: FDA-Public Use
  Company Number: US-PFIZER INC-2013117752

PATIENT
  Age: 53 Year
  Sex: Male
  Weight: 95.69 kg

DRUGS (13)
  1. CELEBREX [Suspect]
     Indication: OSTEOARTHRITIS
     Dosage: 200 MG, 2X/DAY
     Route: 048
     Dates: start: 20130325
  2. CELEBREX [Suspect]
     Indication: PAIN
  3. XARELTO [Concomitant]
     Indication: DEEP VEIN THROMBOSIS
     Dosage: 20 MG, 1X/DAY
  4. TYLENOL [Concomitant]
     Dosage: UNK, 2X/DAY (500 MH TABLET 1 TABLET)
  5. NORCO [Concomitant]
     Indication: PAIN
     Dosage: UNK, 5-325 MG TABLET 1-2 TABLETS AS NEEDED EVERY 6 HRS
  6. ECOTRIN [Concomitant]
     Dosage: 81 MG, 1X/DAY
  7. LIPITOR [Concomitant]
     Dosage: 80 MG, 1X/DAY
     Route: 048
  8. PRINIVIL [Concomitant]
     Dosage: 2.5 MG, 1X/DAY
     Route: 048
  9. LOPRESSOR [Concomitant]
     Dosage: 12.5 MG, 1X/DAY
     Route: 048
  10. EFFIENT [Concomitant]
     Dosage: 10 MG, 1X/DAY (DAILY)
     Route: 048
  11. DULCOLAX [Concomitant]
     Dosage: 5 MG, AS NEEDED
  12. NITROSTAT [Concomitant]
     Indication: CHEST PAIN
     Dosage: 0.4 MG, AS NEEDED (1 TABLET EVERY 5 MINUTES, UP TO 3 DOSES)
     Route: 060
  13. ASA [Concomitant]
     Dosage: UNK

REACTIONS (10)
  - Myocardial infarction [Unknown]
  - Cardiac failure congestive [Unknown]
  - Coronary artery disease [Unknown]
  - Deep vein thrombosis [Recovering/Resolving]
  - Arthralgia [Recovered/Resolved]
  - Night sweats [Unknown]
  - Chills [Unknown]
  - Pain [Unknown]
  - Osteoarthritis [Unknown]
  - Gastrooesophageal reflux disease [Unknown]
